FAERS Safety Report 19508665 (Version 2)
Quarter: 2021Q3

REPORT INFORMATION
  Report Type: Spontaneous
  Country: FR (occurrence: FR)
  Receive Date: 20210708
  Receipt Date: 20210721
  Transmission Date: 20211014
  Serious: Yes (Hospitalization, Other)
  Sender: FDA-Public Use
  Company Number: FR-PFIZER INC-2021758399

PATIENT
  Age: 3 Year
  Sex: Female
  Weight: 16 kg

DRUGS (8)
  1. DEXTRION [Concomitant]
     Active Substance: CALCIUM GLUCONATE\DEXTROSE\POTASSIUM CHLORIDE\SODIUM CHLORIDE
     Dosage: UNK
  2. PARACETAMOL [Concomitant]
     Active Substance: ACETAMINOPHEN
     Dosage: UNK
  3. ACIDE TRANEXAMIQUE [Concomitant]
     Active Substance: TRANEXAMIC ACID
     Dosage: UNK
  4. AMBISOME [Suspect]
     Active Substance: AMPHOTERICIN B
     Dosage: 15 MILLIGRAM, QD (50 MILLIGRAM POWDER FOR SUSPENSION FOR INJECTION)
     Route: 048
     Dates: start: 20210515, end: 20210527
  5. PANTOPRAZOLE [Suspect]
     Active Substance: PANTOPRAZOLE
     Indication: PYREXIA
     Dosage: 40 MILLIGRAM
     Route: 042
     Dates: start: 20210516, end: 20210521
  6. VANCOMYCIN [Suspect]
     Active Substance: VANCOMYCIN
     Indication: PYREXIA
     Dosage: 875 MILLIGRAM, QD
     Route: 042
     Dates: start: 20210514, end: 20210522
  7. BACTRIM [Suspect]
     Active Substance: SULFAMETHOXAZOLE\TRIMETHOPRIM
     Indication: PYREXIA
     Dosage: 1050 MILLIGRAM, 1/WEEK
     Route: 048
     Dates: start: 20210517, end: 20210524
  8. TAZOCILLINE [Suspect]
     Active Substance: PIPERACILLIN SODIUM\TAZOBACTAM SODIUM
     Indication: PYREXIA
     Dosage: 1.4 GRAM, QD
     Route: 042
     Dates: start: 20210501, end: 20210525

REACTIONS (1)
  - Drug reaction with eosinophilia and systemic symptoms [Recovering/Resolving]

NARRATIVE: CASE EVENT DATE: 20210520
